FAERS Safety Report 5975379-X (Version None)
Quarter: 2008Q4

REPORT INFORMATION
  Report Type: 
  Country: None (occurrence: None)
  Receive Date: 20081202
  Receipt Date: 20080121
  Transmission Date: 20090506
  Serious: Yes (Other)
  Sender: FDA-Public Use
  Company Number: US-AMGEN-QUU261558

PATIENT
  Sex: Male

DRUGS (2)
  1. ENBREL [Suspect]
     Indication: RHEUMATOID ARTHRITIS
     Route: 058
     Dates: start: 20020827
  2. HUMIRA [Concomitant]
     Dates: start: 20070101

REACTIONS (2)
  - BONE NEOPLASM MALIGNANT [None]
  - CONDITION AGGRAVATED [None]
